FAERS Safety Report 7541022-1 (Version None)
Quarter: 2011Q2

REPORT INFORMATION
  Report Type: 
  Country: None (occurrence: None)
  Receive Date: 20110610
  Receipt Date: 20100527
  Transmission Date: 20111010
  Serious: No
  Sender: FDA-Public Use
  Company Number: A0854349A

PATIENT
  Age: 6 Year
  Sex: Female
  Weight: 16.9 kg

DRUGS (4)
  1. ALTABAX [Suspect]
     Indication: RASH
     Route: 065
     Dates: start: 20100328, end: 20100328
  2. ZYRTEC [Concomitant]
  3. SINGULAIR [Concomitant]
  4. ALLERGY SHOTS [Concomitant]

REACTIONS (8)
  - BURNING SENSATION [None]
  - PAIN [None]
  - PRURITUS [None]
  - HYPERSENSITIVITY [None]
  - SCREAMING [None]
  - RASH [None]
  - NONSPECIFIC REACTION [None]
  - ERYTHEMA [None]
